FAERS Safety Report 4412878-6 (Version None)
Quarter: 2004Q3

REPORT INFORMATION
  Report Type: 
  Country: None (occurrence: None)
  Receive Date: 20040730
  Receipt Date: 20040730
  Transmission Date: 20050211
  Serious: Yes (Hospitalization)
  Sender: FDA-Public Use
  Company Number: None

PATIENT
  Age: 41 Year
  Sex: Male
  Weight: 73.0291 kg

DRUGS (2)
  1. TOBRAMYCIN [Suspect]
     Dosage: 220 MG Q 18 H IVPB
     Route: 042
     Dates: end: 20040722
  2. TENOFOVIR [Suspect]
     Indication: HIV INFECTION
     Dosage: 300 MG DLY PO
     Route: 048
     Dates: end: 20040722

REACTIONS (2)
  - HAEMODIALYSIS [None]
  - RENAL FAILURE ACUTE [None]
